FAERS Safety Report 18290187 (Version 1)
Quarter: 2020Q3

REPORT INFORMATION
  Report Type: Spontaneous
  Country: ES (occurrence: ES)
  Receive Date: 20200921
  Receipt Date: 20200921
  Transmission Date: 20201103
  Serious: Yes (Hospitalization, Other)
  Sender: FDA-Public Use
  Company Number: ES-ALVOGEN-2020-ALVOGEN-114362

PATIENT
  Age: 3 Day
  Sex: Female

DRUGS (2)
  1. FLECAINIDE [Suspect]
     Active Substance: FLECAINIDE
     Indication: SUPRAVENTRICULAR TACHYCARDIA
     Dosage: 3.3 MG/KG/DAY
  2. PROPRANOLOL [Concomitant]
     Active Substance: PROPRANOLOL HYDROCHLORIDE
     Indication: SUPRAVENTRICULAR TACHYCARDIA
     Dosage: 2.8 MG/KG/DAY

REACTIONS (6)
  - Toxicity to various agents [Unknown]
  - Irritability [Unknown]
  - Dyspnoea [Unknown]
  - Electrocardiogram PR prolongation [Recovered/Resolved]
  - Electrocardiogram QT prolonged [Recovered/Resolved]
  - Bundle branch block right [Recovered/Resolved]
